FAERS Safety Report 13357842 (Version 3)
Quarter: 2018Q2

REPORT INFORMATION
  Report Type: Spontaneous
  Country: US (occurrence: US)
  Receive Date: 20170322
  Receipt Date: 20180626
  Transmission Date: 20180711
  Serious: No
  Sender: FDA-Public Use
  Company Number: US-PFIZER INC-2017106904

PATIENT
  Age: 71 Year
  Sex: Female
  Weight: 109 kg

DRUGS (1)
  1. METHOTREXATE SODIUM. [Suspect]
     Active Substance: METHOTREXATE SODIUM
     Indication: RHEUMATOID ARTHRITIS
     Dosage: UNK
     Dates: start: 201411, end: 201501

REACTIONS (4)
  - Infection [Unknown]
  - Fine motor skill dysfunction [Unknown]
  - Drug ineffective [Unknown]
  - Drug hypersensitivity [Unknown]
